FAERS Safety Report 6411628-1 (Version None)
Quarter: 2009Q4

REPORT INFORMATION
  Report Type: 
  Country: None (occurrence: None)
  Receive Date: 20091020
  Receipt Date: 20041207
  Transmission Date: 20100525
  Serious: No
  Sender: FDA-Public Use
  Company Number: 2009008995

PATIENT
  Age: 14 Month
  Sex: Female

DRUGS (1)
  1. ACTIQ [Suspect]
     Dosage: (400 MG), ORAL
     Route: 048
     Dates: start: 20041207, end: 20041207

REACTIONS (2)
  - ACCIDENTAL DRUG INTAKE BY CHILD [None]
  - SOMNOLENCE [None]
